FAERS Safety Report 7746241-7 (Version None)
Quarter: 2011Q3

REPORT INFORMATION
  Report Type: 
  Country: None (occurrence: None)
  Receive Date: 20110913
  Receipt Date: 20110912
  Transmission Date: 20111222
  Serious: Yes (Life-Threatening, Hospitalization, Other)
  Sender: FDA-Public Use
  Company Number: AR-BRISTOL-MYERS SQUIBB COMPANY-16003428

PATIENT
  Age: 66 Year
  Sex: Female

DRUGS (7)
  1. OMEPRAZOLE [Concomitant]
     Dates: start: 20110313
  2. DICLOFENAC SODIUM [Concomitant]
     Dates: start: 20110313
  3. ABATACEPT [Suspect]
     Indication: RHEUMATOID ARTHRITIS
     Dosage: INTERRUPTED ON 24AUG11,NO OF COURSES: 130
     Route: 058
     Dates: start: 20090209
  4. LEVOTHYROXINE SODIUM [Concomitant]
     Dates: start: 20070101
  5. METHOTREXATE [Suspect]
     Indication: RHEUMATOID ARTHRITIS
     Dates: start: 20030505
  6. PREDNISONE [Concomitant]
     Dates: start: 20110313
  7. FOLIC ACID [Concomitant]
     Dates: start: 20071017

REACTIONS (1)
  - ACUTE CORONARY SYNDROME [None]
